FAERS Safety Report 10241264 (Version 3)
Quarter: 2014Q2

REPORT INFORMATION
  Report Type: Spontaneous
  Country: DE (occurrence: DE)
  Receive Date: 20140617
  Receipt Date: 20140620
  Transmission Date: 20141212
  Serious: Yes (Hospitalization)
  Sender: FDA-Public Use
  Company Number: PHHY2014DE065616

PATIENT
  Age: 75 Year
  Sex: Male
  Weight: 96 kg

DRUGS (2)
  1. ULTIBRO BREEZHALER [Suspect]
     Indication: CHRONIC OBSTRUCTIVE PULMONARY DISEASE
     Dosage: 1 DF, QD
     Dates: start: 20140430
  2. BEROTEC HFA [Concomitant]
     Indication: CHRONIC OBSTRUCTIVE PULMONARY DISEASE

REACTIONS (3)
  - Hypertensive crisis [Recovered/Resolved]
  - Cardiac failure [Recovered/Resolved]
  - Pulmonary oedema [Recovered/Resolved]
